FAERS Safety Report 25342777 (Version 1)
Quarter: 2025Q2

REPORT INFORMATION
  Report Type: Spontaneous
  Country: US (occurrence: None)
  Receive Date: 20250521
  Receipt Date: 20250521
  Transmission Date: 20250717
  Serious: Yes (Other)
  Sender: FDA-CTU
  Company Number: None

PATIENT
  Sex: Male

DRUGS (2)
  1. LENALIDOMIDE [Suspect]
     Active Substance: LENALIDOMIDE
     Indication: Plasma cell myeloma
     Route: 048
     Dates: start: 20241024
  2. FORADIL [Concomitant]
     Active Substance: FORMOTEROL FUMARATE

REACTIONS (3)
  - Nausea [None]
  - Therapy interrupted [None]
  - Bone marrow transplant [None]
